FAERS Safety Report 11730859 (Version 1)
Quarter: 2015Q4

REPORT INFORMATION
  Report Type: Spontaneous
  Country: US (occurrence: US)
  Receive Date: 20151112
  Receipt Date: 20151112
  Transmission Date: 20160304
  Serious: No
  Sender: FDA-Public Use
  Company Number: US-BIOMARINAP-US-2015-108023

PATIENT
  Age: 4 Year
  Sex: Male
  Weight: 18.8 kg

DRUGS (1)
  1. NAGLAZYME [Suspect]
     Active Substance: GALSULFASE
     Indication: PRODUCT USED FOR UNKNOWN INDICATION
     Dosage: UNK, QW
     Route: 042
     Dates: start: 20150904

REACTIONS (2)
  - Diarrhoea [Unknown]
  - Irritability [Unknown]

NARRATIVE: CASE EVENT DATE: 20151107
